FAERS Safety Report 7889074-3 (Version None)
Quarter: 2011Q4

REPORT INFORMATION
  Report Type: 
  Country: None (occurrence: None)
  Receive Date: 20111103
  Receipt Date: 20111102
  Transmission Date: 20120403
  Serious: Yes (Other)
  Sender: FDA-Public Use
  Company Number: ES-PFIZER INC-2011267995

PATIENT
  Age: 68 Year
  Sex: Female

DRUGS (2)
  1. TRAMADOL HCL [Interacting]
     Indication: PAIN
     Dosage: 150 MG, 3X/DAY
     Dates: start: 20110407, end: 20110508
  2. VENLAFAXINE HCL [Suspect]
     Indication: PAIN
     Dosage: 150 MG, 1X/DAY
     Dates: start: 20101005

REACTIONS (3)
  - NUCHAL RIGIDITY [None]
  - DRUG INTERACTION [None]
  - SEROTONIN SYNDROME [None]
